FAERS Safety Report 9652571 (Version 2)
Quarter: 2013Q4

REPORT INFORMATION
  Report Type: Spontaneous
  Country: US (occurrence: US)
  Receive Date: 20131029
  Receipt Date: 20131108
  Transmission Date: 20140711
  Serious: Yes (Hospitalization)
  Sender: FDA-Public Use
  Company Number: US-BAYER-2013-129554

PATIENT
  Age: 22 Year
  Sex: Female

DRUGS (1)
  1. ALEVE GELCAPS [Suspect]
     Indication: PAIN IN EXTREMITY
     Dosage: 2 DF, UNK
     Route: 048
     Dates: end: 20131019

REACTIONS (5)
  - Gastric perforation [None]
  - Pain [None]
  - Scar [None]
  - Chest pain [None]
  - Dyspnoea [None]
